FAERS Safety Report 6794173-3 (Version None)
Quarter: 2010Q2

REPORT INFORMATION
  Report Type: 
  Country: None (occurrence: None)
  Receive Date: 20100624
  Receipt Date: 20071008
  Transmission Date: 20101027
  Serious: Yes (Hospitalization)
  Sender: FDA-Public Use
  Company Number: US-PFIZER INC-ENC200700176

PATIENT
  Age: 71 Year
  Sex: Female

DRUGS (2)
  1. ARGATROBAN [Suspect]
     Indication: HEPARIN-INDUCED THROMBOCYTOPENIA
     Dosage: 2 MCG/KG/MIN,FREQUENCY:  UNK
     Route: 042
     Dates: start: 20071004
  2. ARGATROBAN [Suspect]
     Dosage: 0.75 MCG/KG/MIN,FREQUENCY:  UNK
     Route: 042
     Dates: start: 20071001

REACTIONS (1)
  - COAGULATION TIME PROLONGED [None]
